FAERS Safety Report 9112147 (Version 1)
Quarter: 2013Q1

REPORT INFORMATION
  Report Type: Spontaneous
  Country: US (occurrence: US)
  Receive Date: 20130219
  Receipt Date: 20130219
  Transmission Date: 20140127
  Serious: No
  Sender: FDA-Public Use
  Company Number: US-BRISTOL-MYERS SQUIBB COMPANY-16548117

PATIENT
  Age: 56 Year
  Sex: Female
  Weight: 78.91 kg

DRUGS (5)
  1. ORENCIA [Suspect]
     Indication: RHEUMATOID ARTHRITIS
     Dosage: INJ
     Route: 058
     Dates: start: 20120404
  2. FOLIC ACID [Concomitant]
  3. METHOTREXATE [Concomitant]
  4. OCUVITE [Concomitant]
  5. TRAMADOL [Concomitant]

REACTIONS (2)
  - Laceration [Recovering/Resolving]
  - Injection site reaction [Unknown]
